FAERS Safety Report 6761375-1 (Version None)
Quarter: 2010Q2

REPORT INFORMATION
  Report Type: 
  Country: None (occurrence: None)
  Receive Date: 20100607
  Receipt Date: 20100525
  Transmission Date: 20101027
  Serious: Yes (Hospitalization)
  Sender: FDA-Public Use
  Company Number: LTI2010A00109

PATIENT
  Age: 52 Year
  Sex: Male

DRUGS (5)
  1. ACTOS [Suspect]
     Indication: TYPE 2 DIABETES MELLITUS
     Dosage: 30 MG (30 MG, 1 IN 1 D) ORAL
     Route: 048
     Dates: start: 20091229, end: 20100328
  2. STAGID (METFORMIN EMBONATE) [Concomitant]
  3. SOTALOL HCL [Concomitant]
  4. PRAVASTATIN [Concomitant]
  5. JANUVIA (SITAGLIPTINE)  (ORAL ANTIDIABETICS) [Concomitant]

REACTIONS (2)
  - ECZEMA [None]
  - RASH PAPULAR [None]
